FAERS Safety Report 7005080-5 (Version None)
Quarter: 2010Q3

REPORT INFORMATION
  Report Type: 
  Country: None (occurrence: None)
  Receive Date: 20100921
  Receipt Date: 20100910
  Transmission Date: 20110219
  Serious: Yes (Hospitalization)
  Sender: FDA-Public Use
  Company Number: PHHY2010BR60309

PATIENT
  Sex: Female

DRUGS (1)
  1. DIOVAN HCT [Suspect]
     Dosage: 01 TABLET DAILY
     Route: 048

REACTIONS (3)
  - HAEMORRHAGE [None]
  - PNEUMONIA [None]
  - VARICOSE VEIN RUPTURED [None]
